FAERS Safety Report 9551143 (Version 2)
Quarter: 2013Q4

REPORT INFORMATION
  Report Type: Spontaneous
  Country: US (occurrence: US)
  Receive Date: 20130925
  Receipt Date: 20131016
  Transmission Date: 20140711
  Serious: No
  Sender: FDA-Public Use
  Company Number: US-BIOGENIDEC-2013BI089407

PATIENT
  Sex: Female

DRUGS (1)
  1. TYSABRI [Suspect]
     Indication: MULTIPLE SCLEROSIS
     Route: 042
     Dates: start: 20100916, end: 20130822

REACTIONS (9)
  - Memory impairment [Not Recovered/Not Resolved]
  - Syncope [Recovered/Resolved]
  - Disturbance in attention [Not Recovered/Not Resolved]
  - Weight increased [Not Recovered/Not Resolved]
  - Amnesia [Not Recovered/Not Resolved]
  - Fluid retention [Not Recovered/Not Resolved]
  - Multiple sclerosis relapse [Not Recovered/Not Resolved]
  - Rash [Not Recovered/Not Resolved]
  - Fatigue [Not Recovered/Not Resolved]
